FAERS Safety Report 15165581 (Version 1)
Quarter: 2018Q3

REPORT INFORMATION
  Report Type: Spontaneous
  Country: US (occurrence: US)
  Receive Date: 20180621
  Receipt Date: 20180621
  Transmission Date: 20181010
  Serious: Yes (Hospitalization)
  Sender: FDA-Public Use
  Company Number: None

PATIENT
  Age: 21 Year
  Sex: Female
  Weight: 64.41 kg

DRUGS (1)
  1. MIRENA [Suspect]
     Active Substance: LEVONORGESTREL
     Dates: start: 20180430, end: 20180621

REACTIONS (3)
  - Urine analysis abnormal [None]
  - Paraesthesia [None]
  - Discomfort [None]

NARRATIVE: CASE EVENT DATE: 20180621
